FAERS Safety Report 7379323-2 (Version None)
Quarter: 2011Q1

REPORT INFORMATION
  Report Type: 
  Country: None (occurrence: None)
  Receive Date: 20110329
  Receipt Date: 20110316
  Transmission Date: 20110831
  Serious: No
  Sender: FDA-Public Use
  Company Number: US-BIOGENIDEC-2010BI037404

PATIENT
  Age: 36 Year
  Sex: Female

DRUGS (4)
  1. BENADRYL [Concomitant]
     Indication: PREMEDICATION
     Dates: start: 20101118
  2. TYSABRI [Suspect]
     Route: 042
     Dates: start: 20100825
  3. TYSABRI [Suspect]
     Indication: MULTIPLE SCLEROSIS
     Route: 042
     Dates: start: 20080613, end: 20090615
  4. CORTISONE [Concomitant]
     Indication: PREMEDICATION
     Dates: start: 20101118

REACTIONS (2)
  - HYPERSENSITIVITY [None]
  - MULTIPLE SCLEROSIS [None]
